FAERS Safety Report 15504543 (Version 1)
Quarter: 2018Q4

REPORT INFORMATION
  Report Type: Spontaneous
  Country: BR (occurrence: BR)
  Receive Date: 20181016
  Receipt Date: 20181016
  Transmission Date: 20190205
  Serious: Yes (Death, Other)
  Sender: FDA-Public Use
  Company Number: BR-SA-2018SA268674

PATIENT
  Age: 84 Year
  Sex: Female

DRUGS (1)
  1. LANTUS [Suspect]
     Active Substance: INSULIN GLARGINE
     Indication: DIABETES MELLITUS
     Dosage: UNK, UNK
     Route: 065

REACTIONS (6)
  - Cardiac disorder [Fatal]
  - Fall [Fatal]
  - Physical disability [Fatal]
  - Death [Fatal]
  - Femur fracture [Fatal]
  - Bedridden [Fatal]
